FAERS Safety Report 4657443-0 (Version None)
Quarter: 2005Q2

REPORT INFORMATION
  Report Type: 
  Country: None (occurrence: None)
  Receive Date: 20050506
  Receipt Date: 20050428
  Transmission Date: 20051028
  Serious: Yes (Death)
  Sender: FDA-Public Use
  Company Number: 200510747BWH

PATIENT
  Age: 91 Year

DRUGS (1)
  1. TRASYLOL [Suspect]

REACTIONS (2)
  - CARDIAC DISORDER [None]
  - POST PROCEDURAL COMPLICATION [None]
